FAERS Safety Report 9011948 (Version 1)
Quarter: 2013Q1

REPORT INFORMATION
  Report Type: Spontaneous
  Country: US (occurrence: US)
  Receive Date: 20130107
  Receipt Date: 20130107
  Transmission Date: 20140127
  Serious: Yes (Hospitalization)
  Sender: FDA-Public Use
  Company Number: US-009507513-1301USA002186

PATIENT
  Age: 75 Year
  Sex: Male

DRUGS (6)
  1. SINGULAIR [Suspect]
     Indication: CHRONIC OBSTRUCTIVE PULMONARY DISEASE
     Route: 048
  2. FLIXOTIDE [Suspect]
     Indication: UNEVALUABLE EVENT
     Route: 055
  3. AUGMENTIN [Suspect]
     Route: 048
  4. SIMVASTATIN [Concomitant]
  5. VASTAREL [Concomitant]
  6. NEXIUM [Concomitant]

REACTIONS (1)
  - Gamma-glutamyltransferase increased [Unknown]
